FAERS Safety Report 25545398 (Version 1)
Quarter: 2025Q3

REPORT INFORMATION
  Report Type: Spontaneous
  Country: MA (occurrence: MA)
  Receive Date: 20250711
  Receipt Date: 20250711
  Transmission Date: 20251021
  Serious: Yes (Death)
  Sender: PFIZER
  Company Number: MA-PFIZER INC-202500139921

PATIENT
  Sex: Male

DRUGS (1)
  1. SUTENT [Suspect]
     Active Substance: SUNITINIB MALATE
     Dates: start: 20250421

REACTIONS (1)
  - Death [Fatal]

NARRATIVE: CASE EVENT DATE: 20250601
